FAERS Safety Report 8184289-1 (Version None)
Quarter: 2012Q1

REPORT INFORMATION
  Report Type: 
  Country: None (occurrence: None)
  Receive Date: 20120305
  Receipt Date: 20120224
  Transmission Date: 20120608
  Serious: Yes (Other)
  Sender: FDA-Public Use
  Company Number: US-BRISTOL-MYERS SQUIBB COMPANY-15554496

PATIENT
  Age: 81 Year
  Sex: Female

DRUGS (1)
  1. IXEMPRA KIT [Suspect]
     Indication: BREAST CANCER
     Dosage: 40MG/M2
     Route: 042
     Dates: start: 20110215

REACTIONS (3)
  - NERVE INJURY [None]
  - ALOPECIA [None]
  - EXTRAVASATION [None]
